FAERS Safety Report 8157046-X (Version None)
Quarter: 2012Q1

REPORT INFORMATION
  Report Type: 
  Country: None (occurrence: None)
  Receive Date: 20120222
  Receipt Date: 20120215
  Transmission Date: 20120608
  Serious: Yes (Hospitalization)
  Sender: FDA-Public Use
  Company Number: IE-US-EMD SERONO, INC.-7031776

PATIENT
  Sex: Female

DRUGS (2)
  1. REBIF [Suspect]
     Route: 058
     Dates: start: 20090826
  2. REBIF [Suspect]
     Indication: RELAPSING-REMITTING MULTIPLE SCLEROSIS
     Route: 058
     Dates: start: 20070903, end: 20080125

REACTIONS (11)
  - POOR PERIPHERAL CIRCULATION [None]
  - WRONG TECHNIQUE IN DRUG USAGE PROCESS [None]
  - MULTIPLE SCLEROSIS RELAPSE [None]
  - INJECTION SITE LACERATION [None]
  - PERIPHERAL COLDNESS [None]
  - INJECTION SITE PAIN [None]
  - FATIGUE [None]
  - MUSCLE SPASMS [None]
  - SKIN DISCOLOURATION [None]
  - HEADACHE [None]
  - ABDOMINAL DISCOMFORT [None]
